FAERS Safety Report 8081862-6 (Version None)
Quarter: 2012Q1

REPORT INFORMATION
  Report Type: 
  Country: None (occurrence: None)
  Receive Date: 20120130
  Receipt Date: 20120126
  Transmission Date: 20120608
  Serious: No
  Sender: FDA-Public Use
  Company Number: US-BAYER-2012-009210

PATIENT
  Sex: Female
  Weight: 59 kg

DRUGS (8)
  1. ALEVE (CAPLET) [Suspect]
     Indication: ARTHRITIS
     Dosage: UNK
     Dates: start: 20120123, end: 20120124
  2. NEXIUM [Concomitant]
  3. ASCORBIC ACID [Concomitant]
  4. CALCIUM CARBONATE [Concomitant]
  5. VALTREX [Concomitant]
  6. ARTHROTEC [Concomitant]
  7. POTASSIUM CHLORIDE [Concomitant]
  8. VITAMIN B6 [Concomitant]

REACTIONS (3)
  - NIGHTMARE [None]
  - INSOMNIA [None]
  - URTICARIA [None]
